FAERS Safety Report 23461889 (Version 2)
Quarter: 2024Q3

REPORT INFORMATION
  Report Type: Spontaneous
  Country: US (occurrence: US)
  Receive Date: 20240131
  Receipt Date: 20240709
  Transmission Date: 20241017
  Serious: Yes (Death, Hospitalization)
  Sender: AMGEN
  Company Number: US-AMGEN-USASP2024016299

PATIENT
  Age: 38 Year
  Sex: Female

DRUGS (4)
  1. RITUXIMAB [Suspect]
     Active Substance: RITUXIMAB
     Indication: Chronic lymphocytic leukaemia
     Dosage: 540 MILLIGRAM/SQ. METER
     Route: 065
  2. PREDNISONE [Suspect]
     Active Substance: PREDNISONE
     Indication: Immunosuppression
     Dosage: 1 MILLIGRAM/KILOGRAM, QD
     Route: 065
  3. IRON [Concomitant]
     Active Substance: IRON
     Dosage: 200 MILLIGRAM, QD
     Route: 042
  4. ERYTHROPOIETIN [Concomitant]
     Active Substance: ERYTHROPOIETIN
     Dosage: 40000 INTERNATIONAL UNIT, BID
     Route: 065

REACTIONS (7)
  - Death [Fatal]
  - General physical health deterioration [Unknown]
  - Cardiac arrest [Unknown]
  - Vomiting [Unknown]
  - Hypergammaglobulinaemia [Unknown]
  - Drug ineffective [Unknown]
  - Off label use [Unknown]
